FAERS Safety Report 25241751 (Version 1)
Quarter: 2025Q2

REPORT INFORMATION
  Report Type: Spontaneous
  Country: DE (occurrence: DE)
  Receive Date: 20250426
  Receipt Date: 20250426
  Transmission Date: 20250716
  Serious: Yes (Other)
  Sender: AUROBINDO
  Company Number: DE-ELI_LILLY_AND_COMPANY-DE202504000712

PATIENT

DRUGS (8)
  1. PEMETREXED [Suspect]
     Active Substance: PEMETREXED
     Indication: Lung adenocarcinoma stage IV
     Route: 065
     Dates: start: 20240220
  2. LORLATINIB [Suspect]
     Active Substance: LORLATINIB
     Indication: Non-small cell lung cancer
     Dosage: 25 MILLIGRAM, EVERY OTHER DAY
     Route: 065
     Dates: start: 2024
  3. CARBOPLATIN [Concomitant]
     Active Substance: CARBOPLATIN
     Indication: Lung adenocarcinoma stage IV
     Route: 065
     Dates: start: 20240220
  4. PEMBROLIZUMAB [Concomitant]
     Active Substance: PEMBROLIZUMAB
     Indication: Lung adenocarcinoma stage IV
     Route: 065
     Dates: start: 20240220
  5. METFORMIN HYDROCHLORIDE [Concomitant]
     Active Substance: METFORMIN HYDROCHLORIDE
     Indication: Diabetes mellitus
     Route: 065
  6. ZOLEDRONIC ACID [Concomitant]
     Active Substance: ZOLEDRONIC ACID
     Indication: Product used for unknown indication
     Route: 065
  7. BRIGATINIB [Concomitant]
     Active Substance: BRIGATINIB
     Indication: Product used for unknown indication
     Dosage: 90 MILLIGRAM, EVERY OTHER DAY
     Route: 065
     Dates: start: 202403
  8. PREDNISOLONE [Concomitant]
     Active Substance: PREDNISOLONE
     Indication: Product used for unknown indication
     Route: 065

REACTIONS (9)
  - Thrombosis [Unknown]
  - Liver function test increased [Unknown]
  - Malignant neoplasm progression [Unknown]
  - Pulmonary embolism [Unknown]
  - Blood pressure increased [Unknown]
  - Blood glucose increased [Unknown]
  - Blood cholesterol increased [Unknown]
  - Blood lactate dehydrogenase increased [Unknown]
  - Oedema [Unknown]

NARRATIVE: CASE EVENT DATE: 20240301
